FAERS Safety Report 23764926 (Version 2)
Quarter: 2024Q2

REPORT INFORMATION
  Report Type: Report from Study
  Country: TR (occurrence: TR)
  Receive Date: 20240420
  Receipt Date: 20240502
  Transmission Date: 20240716
  Serious: Yes (Hospitalization)
  Sender: FDA-Public Use
  Company Number: TR-ABBVIE-5723499

PATIENT
  Sex: Male

DRUGS (2)
  1. CARBIDOPA\LEVODOPA [Suspect]
     Active Substance: CARBIDOPA\LEVODOPA
     Indication: Parkinson^s disease
     Dosage: MORNING DOSE (ML): 8.00 CONTINUOUS DOSE (ML): 2.00 EXTRA DOSE (ML): 1.00
     Route: 050
     Dates: start: 20231023, end: 20240418
  2. CARBIDOPA\LEVODOPA [Suspect]
     Active Substance: CARBIDOPA\LEVODOPA
     Dosage: MORNING DOSE (ML): 8.00 CONTINUOUS DOSE (ML): 2.00 EXTRA DOSE (ML): 1.00
     Route: 050
     Dates: start: 20240418

REACTIONS (1)
  - Gallbladder mass [Not Recovered/Not Resolved]
